FAERS Safety Report 8110816-6 (Version None)
Quarter: 2012Q1

REPORT INFORMATION
  Report Type: 
  Country: None (occurrence: None)
  Receive Date: 20120125
  Receipt Date: 20120119
  Transmission Date: 20120608
  Serious: Yes (Death, Hospitalization)
  Sender: FDA-Public Use
  Company Number: 2012030753

PATIENT
  Age: 69 Year
  Sex: Male
  Weight: 115.2136 kg

DRUGS (4)
  1. HIZENTRA [Suspect]
     Indication: IMMUNODEFICIENCY COMMON VARIABLE
     Dosage: (17 G 1X/WEEK, 1 GM 5 ML VIAL; 85 ML IN 4-6 SITES OVER 1-2 HOURS SUBCUTANEOUS)
     Route: 058
  2. HIZENTRA [Suspect]
     Indication: HYPOGAMMAGLOBULINAEMIA
     Dosage: (17 G 1X/WEEK, 1 GM 5 ML VIAL; 85 ML IN 4-6 SITES OVER 1-2 HOURS SUBCUTANEOUS)
     Route: 058
  3. HIZENTRA [Suspect]
     Indication: HYPOGAMMAGLOBULINAEMIA
     Dosage: 4 GM 20 ML VIAL SUBCUTANEOUS
     Route: 058
  4. HIZENTRA [Suspect]
     Indication: IMMUNODEFICIENCY COMMON VARIABLE
     Dosage: 4 GM 20 ML VIAL SUBCUTANEOUS
     Route: 058

REACTIONS (2)
  - METASTASIS [None]
  - NEOPLASM MALIGNANT [None]
